FAERS Safety Report 12396603 (Version 3)
Quarter: 2016Q2

REPORT INFORMATION
  Report Type: Report from Study
  Country: US (occurrence: US)
  Receive Date: 20160524
  Receipt Date: 20160610
  Transmission Date: 20160815
  Serious: Yes (Other)
  Sender: FDA-Public Use
  Company Number: US-AMGEN-USASL2016061728

PATIENT
  Age: 50 Year
  Sex: Female

DRUGS (1)
  1. ENBREL [Suspect]
     Active Substance: ETANERCEPT
     Indication: RHEUMATOID ARTHRITIS
     Dosage: 50 MG, WEEKLY
     Route: 065
     Dates: start: 20160406

REACTIONS (10)
  - Rheumatoid vasculitis [Unknown]
  - Eye discharge [Unknown]
  - Feeling of body temperature change [Unknown]
  - Oropharyngeal pain [Unknown]
  - Infection [Unknown]
  - Eye swelling [Unknown]
  - Fatigue [Not Recovered/Not Resolved]
  - Sinusitis [Recovering/Resolving]
  - Injection site pain [Unknown]
  - Wrong technique in product usage process [Unknown]

NARRATIVE: CASE EVENT DATE: 2016
